FAERS Safety Report 22083364 (Version 1)
Quarter: 2023Q1

REPORT INFORMATION
  Report Type: Spontaneous
  Country: US (occurrence: None)
  Receive Date: 20230309
  Receipt Date: 20230309
  Transmission Date: 20230418
  Serious: Yes (Other)
  Sender: FDA-Public Use
  Company Number: None

PATIENT
  Age: 50 Year
  Sex: Female
  Weight: 52.65 kg

DRUGS (2)
  1. PAXLOVID [Suspect]
     Active Substance: NIRMATRELVIR\RITONAVIR
     Indication: COVID-19
     Dosage: OTHER QUANTITY : 3 TABLET(S);?FREQUENCY : TWICE A DAY;?
     Route: 048
     Dates: start: 20221228, end: 20221231
  2. multi-vitamins [Concomitant]

REACTIONS (7)
  - Hypophagia [None]
  - Peptic ulcer [None]
  - Gastritis [None]
  - Vomiting [None]
  - Abdominal pain upper [None]
  - Gastrooesophageal reflux disease [None]
  - Pancreatitis [None]

NARRATIVE: CASE EVENT DATE: 20230203
